FAERS Safety Report 9781731 (Version 1)
Quarter: 2013Q4

REPORT INFORMATION
  Report Type: Spontaneous
  Country: BD (occurrence: BD)
  Receive Date: 20131224
  Receipt Date: 20131224
  Transmission Date: 20140711
  Serious: Yes (Death)
  Sender: FDA-Public Use
  Company Number: BD-ROCHE-1324600

PATIENT
  Age: 55 Year
  Sex: Female

DRUGS (1)
  1. NEULASTIM [Suspect]
     Indication: FEBRILE NEUTROPENIA
     Route: 065
     Dates: start: 20131118

REACTIONS (1)
  - Performance status decreased [Fatal]
